FAERS Safety Report 21377996 (Version 3)
Quarter: 2022Q3

REPORT INFORMATION
  Report Type: Report from Study
  Country: US (occurrence: US)
  Receive Date: 20220926
  Receipt Date: 20220930
  Transmission Date: 20221026
  Serious: Yes (Other)
  Sender: FDA-Public Use
  Company Number: US-JAZZ-2022-US-003185

PATIENT
  Age: 19 Year
  Sex: Female

DRUGS (6)
  1. XYREM [Suspect]
     Active Substance: SODIUM OXYBATE
     Indication: Narcolepsy
     Dosage: 2.25G BID AT BEDTIME
     Route: 048
     Dates: start: 200307, end: 200504
  2. XYREM [Suspect]
     Active Substance: SODIUM OXYBATE
     Indication: Cataplexy
     Dosage: DOSE ADJUSTMENT
     Route: 048
     Dates: start: 200504, end: 201004
  3. XYREM [Suspect]
     Active Substance: SODIUM OXYBATE
     Dosage: 4.5G BID AT BEDTIME
     Route: 048
     Dates: start: 201004
  4. XYREM [Suspect]
     Active Substance: SODIUM OXYBATE
     Dosage: 3.5G FOR THE FIRST DOSE AND 5.5G FOR THE SECOND DOSE
  5. WAKIX [Concomitant]
     Active Substance: PITOLISANT HYDROCHLORIDE
     Indication: Product used for unknown indication
     Dosage: UNK, QD
     Dates: start: 20200509
  6. PLAQUENIL [Concomitant]
     Active Substance: HYDROXYCHLOROQUINE SULFATE
     Indication: Product used for unknown indication
     Dosage: UNK
     Dates: start: 20220801

REACTIONS (6)
  - Systemic lupus erythematosus [Unknown]
  - Vomiting [Unknown]
  - Muscle spasms [Unknown]
  - Asthenia [Unknown]
  - Product administration error [Unknown]
  - Product prescribing error [Unknown]

NARRATIVE: CASE EVENT DATE: 20220801
